FAERS Safety Report 8609043 (Version 5)
Quarter: 2012Q4

REPORT INFORMATION
  Report Type: Report from Study
  Country: US (occurrence: US)
  Receive Date: 20120611
  Receipt Date: 20121119
  Transmission Date: 20130627
  Serious: Yes (Hospitalization)
  Sender: FDA-Public Use
  Company Number: US-ROCHE-1074618

PATIENT
  Age: 48 Year
  Sex: Female
  Weight: 106.3 kg

DRUGS (27)
  1. VEMURAFENIB [Suspect]
     Indication: METASTATIC MALIGNANT MELANOMA
     Dosage: Last dose prior to sae: 27/May/2012
     Route: 048
     Dates: start: 20120416, end: 20120527
  2. VEMURAFENIB [Interacting]
     Route: 048
     Dates: start: 20120620
  3. PARACETAMOL [Interacting]
     Indication: PRODUCT USED FOR UNKNOWN INDICATION
     Route: 065
     Dates: start: 20120516, end: 20120517
  4. PARACETAMOL [Interacting]
     Route: 065
     Dates: start: 20120518, end: 20120518
  5. PARACETAMOL [Interacting]
     Route: 065
     Dates: start: 20120519, end: 20120521
  6. PARACETAMOL [Interacting]
     Route: 065
     Dates: start: 20120522, end: 20120522
  7. PARACETAMOL [Interacting]
     Route: 065
     Dates: start: 20120523, end: 20120526
  8. PARACETAMOL [Interacting]
     Route: 065
     Dates: start: 20120527, end: 20120527
  9. PARACETAMOL [Interacting]
     Route: 065
     Dates: start: 20120528, end: 20120530
  10. PARACETAMOL [Interacting]
     Route: 065
     Dates: start: 20120531, end: 20120601
  11. PARACETAMOL [Interacting]
     Route: 065
     Dates: start: 20120628
  12. PARACETAMOL [Interacting]
     Route: 065
     Dates: start: 20120507, end: 20120508
  13. PARACETAMOL [Interacting]
     Route: 065
     Dates: start: 20120509, end: 20120509
  14. PARACETAMOL [Interacting]
     Route: 065
     Dates: start: 20120510, end: 20120510
  15. PARACETAMOL [Interacting]
     Route: 065
     Dates: start: 20120511, end: 20120511
  16. BACTRIM [Interacting]
     Indication: PRODUCT USED FOR UNKNOWN INDICATION
     Route: 065
     Dates: start: 20120523, end: 20120527
  17. BACTRIM [Interacting]
     Route: 065
     Dates: start: 20120522, end: 20120526
  18. ROCEPHIN [Interacting]
     Indication: PRODUCT USED FOR UNKNOWN INDICATION
     Route: 065
     Dates: start: 20120527, end: 20120527
  19. FLAGYL [Interacting]
     Indication: PRODUCT USED FOR UNKNOWN INDICATION
     Route: 065
     Dates: start: 20120527, end: 20120527
  20. DOXYCYCLINE [Interacting]
     Indication: PRODUCT USED FOR UNKNOWN INDICATION
     Route: 065
     Dates: start: 20120527, end: 20120527
  21. BENADRYL [Suspect]
     Indication: PRODUCT USED FOR UNKNOWN INDICATION
     Route: 065
     Dates: start: 20120426
  22. OMEPRAZOLE [Suspect]
     Indication: PRODUCT USED FOR UNKNOWN INDICATION
     Route: 065
     Dates: start: 20120426
  23. MORPHINE [Concomitant]
     Route: 065
     Dates: start: 20120601, end: 20120602
  24. METRONIDAZOLE [Concomitant]
     Route: 042
     Dates: start: 20120527, end: 20120527
  25. LIDOCAINE/EPINEPHRINE [Concomitant]
     Dosage: daily dose: 1 % 1:100, 000
     Route: 030
     Dates: start: 20120515, end: 20120515
  26. KETOCONAZOLE [Concomitant]
     Route: 061
     Dates: start: 20120515
  27. HYDROCORTISONE [Concomitant]
     Route: 061
     Dates: start: 20120515

REACTIONS (4)
  - Cholestasis [Recovered/Resolved]
  - Liver function test abnormal [Recovering/Resolving]
  - Jaundice [Recovering/Resolving]
  - Pyrexia [Recovering/Resolving]
